FAERS Safety Report 11009541 (Version 1)
Quarter: 2015Q2

REPORT INFORMATION
  Report Type: Spontaneous
  Country: US (occurrence: None)
  Receive Date: 20150409
  Receipt Date: 20150409
  Transmission Date: 20150821
  Serious: Yes (Disabling)
  Sender: FDA-Public Use
  Company Number: None

PATIENT
  Age: 13 Year
  Sex: Male
  Weight: 60.78 kg

DRUGS (5)
  1. LUPRON [Suspect]
     Active Substance: LEUPROLIDE ACETATE
     Indication: PRECOCIOUS PUBERTY
     Dosage: INTO THE MUSCLE
     Dates: start: 20100316, end: 20141217
  2. SPIRONOLACTONE. [Concomitant]
     Active Substance: SPIRONOLACTONE
  3. OMEPRAZOLE. [Concomitant]
     Active Substance: OMEPRAZOLE
  4. BICALUTAMIDE. [Concomitant]
     Active Substance: BICALUTAMIDE
  5. ANASTROZOLE. [Concomitant]
     Active Substance: ANASTROZOLE

REACTIONS (10)
  - Oesophageal oedema [None]
  - Abdominal pain upper [None]
  - General physical health deterioration [None]
  - Oesophageal stenosis [None]
  - Abdominal pain lower [None]
  - Weight decreased [None]
  - Hypophagia [None]
  - Nausea [None]
  - Frequent bowel movements [None]
  - Asthenia [None]
